FAERS Safety Report 8150632 (Version 5)
Quarter: 2013Q3

REPORT INFORMATION
  Report Type: Spontaneous
  Country: US (occurrence: US)
  Receive Date: 20110922
  Receipt Date: 20130730
  Transmission Date: 20140515
  Serious: Yes (Other)
  Sender: FDA-Public Use
  Company Number: US-ASTRAZENECA-2011SE12515

PATIENT
  Age: 44 Year
  Sex: Female
  Weight: 107.5 kg

DRUGS (15)
  1. SEROQUEL [Suspect]
     Route: 048
     Dates: start: 20080623
  2. ZYRTEC D [Concomitant]
  3. XANAX [Concomitant]
  4. VICODIN [Concomitant]
     Indication: PAIN
  5. CYMBALTA [Concomitant]
  6. REMERON [Concomitant]
  7. NASONEX [Concomitant]
  8. TESSALON PEARLS [Concomitant]
  9. NEXIUM [Concomitant]
     Dosage: BID
  10. NEXIUM [Concomitant]
     Dosage: ONCE DAILY
  11. IRON SULFATE [Concomitant]
  12. KEFLEX [Concomitant]
     Dates: start: 20120628
  13. HCTZ [Concomitant]
     Dates: end: 20121206
  14. LASIX [Concomitant]
     Dates: start: 20121206
  15. LEVAQUIN [Concomitant]
     Route: 048
     Dates: start: 20130502

REACTIONS (3)
  - Diabetic coma [Unknown]
  - Alcoholic pancreatitis [Unknown]
  - Type 2 diabetes mellitus [Unknown]
